FAERS Safety Report 21649113 (Version 2)
Quarter: 2023Q1

REPORT INFORMATION
  Report Type: Report from Study
  Country: US (occurrence: US)
  Receive Date: 20221128
  Receipt Date: 20230327
  Transmission Date: 20230418
  Serious: No
  Sender: FDA-Public Use
  Company Number: US-ABBVIE-4183779

PATIENT
  Sex: Female

DRUGS (1)
  1. HUMIRA [Suspect]
     Active Substance: ADALIMUMAB
     Indication: Psoriasis
     Dosage: CITRATE FREE,?FORM STRENGTH: 40 MILLIGRAM
     Route: 058
     Dates: start: 20220119

REACTIONS (4)
  - Ligament sprain [Unknown]
  - Myalgia [Unknown]
  - Psoriasis [Unknown]
  - Anaemia [Unknown]
